FAERS Safety Report 6795540-4 (Version None)
Quarter: 2010Q2

REPORT INFORMATION
  Report Type: 
  Country: None (occurrence: None)
  Receive Date: 20100625
  Receipt Date: 20100617
  Transmission Date: 20101027
  Serious: Yes (Hospitalization, Other)
  Sender: FDA-Public Use
  Company Number: PR-ABBOTT-10P-131-0643507-00

PATIENT
  Sex: Male
  Weight: 73.094 kg

DRUGS (14)
  1. NIASPAN [Suspect]
     Indication: HYPERLIPIDAEMIA
     Route: 048
     Dates: start: 20100503, end: 20100506
  2. COREG [Concomitant]
     Indication: HYPERTENSION
  3. LIPITOR [Concomitant]
     Indication: HYPERLIPIDAEMIA
     Route: 048
  4. LIPITOR [Concomitant]
     Route: 048
     Dates: start: 20100201
  5. NEXIUM [Concomitant]
     Indication: DYSPEPSIA
     Route: 048
  6. NEXIUM [Concomitant]
     Indication: GASTROOESOPHAGEAL REFLUX DISEASE
  7. PLAVIX [Concomitant]
     Indication: CARDIAC DISORDER
     Route: 048
  8. FLOMAX [Concomitant]
     Indication: BENIGN PROSTATIC HYPERPLASIA
     Route: 048
  9. PLETAL [Concomitant]
     Indication: ACUTE CORONARY SYNDROME
     Route: 048
  10. LIPITOR [Concomitant]
     Indication: HYPERTRIGLYCERIDAEMIA
     Route: 048
     Dates: end: 20100201
  11. PROTECT PLUS [Concomitant]
     Indication: VITAMIN SUPPLEMENTATION
     Route: 048
  12. DIOVAN [Concomitant]
     Indication: HYPERTENSION
     Dosage: 160/12.5 MG
     Route: 048
     Dates: start: 20100201
  13. ASPIRIN [Concomitant]
     Indication: PROPHYLAXIS
     Route: 048
  14. ASPIRIN [Concomitant]
     Indication: FLUSHING

REACTIONS (7)
  - HAEMATEMESIS [None]
  - HAEMATOCHEZIA [None]
  - HYPOTENSION [None]
  - MYOCARDIAL INFARCTION [None]
  - NAUSEA [None]
  - SHOCK [None]
  - UPPER GASTROINTESTINAL HAEMORRHAGE [None]
